FAERS Safety Report 12980277 (Version 12)
Quarter: 2017Q4

REPORT INFORMATION
  Report Type: Report from Study
  Country: IL (occurrence: IL)
  Receive Date: 20161128
  Receipt Date: 20171013
  Transmission Date: 20180320
  Serious: Yes (Hospitalization, Other)
  Sender: FDA-Public Use
  Company Number: IL-INCYTE CORPORATION-2016IN007474

PATIENT

DRUGS (4)
  1. JAKAVI [Suspect]
     Active Substance: RUXOLITINIB
     Dosage: 5 MG, BID
     Route: 048
  2. JAKAVI [Suspect]
     Active Substance: RUXOLITINIB
     Indication: MYELOFIBROSIS
     Dosage: 10 MG, BID
     Route: 048
     Dates: start: 20161108, end: 20161115
  3. XARELTO [Suspect]
     Active Substance: RIVAROXABAN
     Indication: PRODUCT USED FOR UNKNOWN INDICATION
     Route: 065
  4. COUMADIN [Concomitant]
     Active Substance: WARFARIN SODIUM
     Indication: COAGULOPATHY
     Route: 065

REACTIONS (9)
  - Haemarthrosis [Recovered/Resolved]
  - Skin ulcer [Not Recovered/Not Resolved]
  - Arthralgia [Not Recovered/Not Resolved]
  - Haematoma [Not Recovered/Not Resolved]
  - Constipation [Not Recovered/Not Resolved]
  - Urinary tract infection staphylococcal [Recovered/Resolved]
  - Anaemia [Not Recovered/Not Resolved]
  - Insomnia [Not Recovered/Not Resolved]
  - Flatulence [Not Recovered/Not Resolved]

NARRATIVE: CASE EVENT DATE: 20161115
